FAERS Safety Report 4546755-7 (Version None)
Quarter: 2005Q1

REPORT INFORMATION
  Report Type: 
  Country: None (occurrence: None)
  Receive Date: 20050105
  Receipt Date: 20041220
  Transmission Date: 20050727
  Serious: Yes (Life-Threatening)
  Sender: FDA-Public Use
  Company Number: 2004EU002235

PATIENT
  Age: 12 Year
  Sex: Male

DRUGS (3)
  1. PROGRAF [Suspect]
     Indication: RENAL TRANSPLANT
     Dosage: UNK, UNKNOWN/D, UNK (SEE IMAGE)
     Route: 065
  2. MYCOPHENOLATE MOFETIL [Concomitant]
  3. PREDNISONE [Concomitant]

REACTIONS (4)
  - POST PROCEDURAL COMPLICATION [None]
  - PYELONEPHRITIS [None]
  - URINARY TRACT INFECTION [None]
  - VOMITING [None]
